FAERS Safety Report 4422441-9 (Version None)
Quarter: 2004Q3

REPORT INFORMATION
  Report Type: 
  Country: None (occurrence: None)
  Receive Date: 20040806
  Receipt Date: 20040721
  Transmission Date: 20050211
  Serious: Yes (Death, Hospitalization, Other)
  Sender: FDA-Public Use
  Company Number: USA040773297

PATIENT
  Age: 30 Year
  Sex: Female
  Weight: 96 kg

DRUGS (1)
  1. PROZAC [Suspect]

REACTIONS (3)
  - COMPLETED SUICIDE [None]
  - GASTRIC BYPASS [None]
  - INTENTIONAL OVERDOSE [None]
